FAERS Safety Report 8728402 (Version 5)
Quarter: 2013Q2

REPORT INFORMATION
  Report Type: Spontaneous
  Country: RS (occurrence: RS)
  Receive Date: 20120817
  Receipt Date: 20130628
  Transmission Date: 20140414
  Serious: Yes (Hospitalization, Other)
  Sender: FDA-Public Use
  Company Number: RS-RANBAXY-2012RR-58945

PATIENT
  Age: 78 Year
  Sex: Female
  Weight: 69 kg

DRUGS (7)
  1. NORVASC [Suspect]
     Indication: HYPERTENSION
     Dosage: 10 MG, QD
     Route: 065
  2. NORVASC [Suspect]
     Indication: HYPERTENSION
     Dosage: 10 MG, SINGLE
     Route: 048
     Dates: start: 20110307
  3. SIMVASTATIN [Suspect]
     Dosage: 20 MG, SINGLE
     Route: 048
  4. GLICLAZIDE [Concomitant]
     Indication: TYPE 2 DIABETES MELLITUS
     Dosage: UNK
     Route: 065
  5. FOSINOPRIL [Concomitant]
     Indication: PRODUCT USED FOR UNKNOWN INDICATION
     Dosage: UNK
     Route: 065
  6. FUROSEMIDE [Concomitant]
     Indication: PRODUCT USED FOR UNKNOWN INDICATION
     Dosage: UNK
     Route: 065
  7. IPRATROPIUM BROMIDE/FENOTEROL HYDROBROMIDE INHALER [Concomitant]
     Indication: ASTHMA
     Dosage: UNK
     Route: 055

REACTIONS (3)
  - Thrombocytopenia [Recovered/Resolved]
  - Urticaria [Recovered/Resolved]
  - Drug administration error [Unknown]
